FAERS Safety Report 19254009 (Version 1)
Quarter: 2021Q2

REPORT INFORMATION
  Report Type: Spontaneous
  Country: CA (occurrence: CA)
  Receive Date: 20210513
  Receipt Date: 20210513
  Transmission Date: 20210717
  Serious: Yes (Other)
  Sender: FDA-Public Use
  Company Number: CA-ACCORD-224898

PATIENT
  Sex: Female

DRUGS (3)
  1. TAMOXIFEN [Suspect]
     Active Substance: TAMOXIFEN
     Indication: PRODUCT USED FOR UNKNOWN INDICATION
     Dosage: 1 EVERY 1 DAYS
     Route: 048
  2. FULVESTRANT. [Concomitant]
     Active Substance: FULVESTRANT
  3. LETROZOLE. [Suspect]
     Active Substance: LETROZOLE
     Dosage: 1 EVERY 1 DAYS
     Route: 048

REACTIONS (17)
  - Diarrhoea [Unknown]
  - Drug hypersensitivity [Unknown]
  - Rash [Unknown]
  - Vomiting [Unknown]
  - Metastases to liver [Unknown]
  - Skin exfoliation [Unknown]
  - Device related thrombosis [Unknown]
  - Breast cancer metastatic [Unknown]
  - Metastases to bone [Unknown]
  - Nausea [Unknown]
  - Disease progression [Unknown]
  - Chest pain [Unknown]
  - Drug ineffective [Unknown]
  - Heart rate irregular [Unknown]
  - Neuropathy peripheral [Unknown]
  - Paraesthesia [Unknown]
  - Nail disorder [Unknown]
